FAERS Safety Report 8762243 (Version 1)
Quarter: 2012Q4

REPORT INFORMATION
  Report Type: 
  Country: US (occurrence: US)
  Receive Date: 20120829
  Receipt Date: 20120829
  Transmission Date: 20130627
  Serious: Yes (Other)
  Sender: FDA-Public Use
  Company Number: US-PFIZER INC-2012208277

PATIENT
  Age: 49 Year
  Sex: Female
  Weight: 55.33 kg

DRUGS (1)
  1. PREMARIN [Suspect]
     Indication: VULVOVAGINAL DRYNESS
     Dosage: UNK, 1x/day
     Route: 067
     Dates: start: 20120821, end: 20120822

REACTIONS (4)
  - Haemorrhage [Not Recovered/Not Resolved]
  - Abdominal pain upper [Recovering/Resolving]
  - Eructation [Not Recovered/Not Resolved]
  - Abdominal discomfort [Not Recovered/Not Resolved]
